FAERS Safety Report 25572751 (Version 1)
Quarter: 2025Q3

REPORT INFORMATION
  Report Type: Report from Study
  Country: US (occurrence: US)
  Receive Date: 20250717
  Receipt Date: 20250717
  Transmission Date: 20251021
  Serious: Yes (Other)
  Sender: ELI LILLY AND COMPANY
  Company Number: US-ELI_LILLY_AND_COMPANY-US202401016730

PATIENT
  Age: 52 Year
  Sex: Female

DRUGS (4)
  1. VERZENIO [Suspect]
     Active Substance: ABEMACICLIB
     Indication: Breast cancer
     Dosage: 100 MG, BID
     Route: 048
     Dates: start: 202208
  2. VERZENIO [Suspect]
     Active Substance: ABEMACICLIB
     Dosage: 100 MG, BID
     Route: 048
  3. VERZENIO [Suspect]
     Active Substance: ABEMACICLIB
     Dosage: 100 MG, BID
     Route: 048
  4. VERZENIO [Suspect]
     Active Substance: ABEMACICLIB
     Dosage: 100 MG, BID
     Route: 048

REACTIONS (7)
  - Hepatitis [Recovered/Resolved]
  - Stress [Unknown]
  - Memory impairment [Unknown]
  - Grip strength decreased [Recovering/Resolving]
  - Pain in extremity [Recovering/Resolving]
  - Arthralgia [Recovering/Resolving]
  - Fatigue [Recovering/Resolving]
